FAERS Safety Report 6590397-9 (Version None)
Quarter: 2010Q1

REPORT INFORMATION
  Report Type: 
  Country: None (occurrence: None)
  Receive Date: 20100219
  Receipt Date: 20100209
  Transmission Date: 20100710
  Serious: Yes (Hospitalization)
  Sender: FDA-Public Use
  Company Number: JP-ROCHE-673858

PATIENT
  Sex: Female
  Weight: 41 kg

DRUGS (6)
  1. TOCILIZUMAB [Suspect]
     Indication: RHEUMATOID ARTHRITIS
     Dosage: DISCONTINUED
     Route: 041
     Dates: start: 20080520, end: 20080520
  2. METHOTREXATE [Suspect]
     Indication: RHEUMATOID ARTHRITIS
     Dosage: FORM: PERORAL AGENT
     Route: 048
  3. RIMATIL [Suspect]
     Indication: RHEUMATOID ARTHRITIS
     Route: 048
     Dates: end: 20080606
  4. PREDNISOLONE [Concomitant]
     Dosage: FORM: PERORAL AGENT
     Route: 048
  5. CELCOX [Concomitant]
     Route: 048
  6. CYTOTEC [Concomitant]
     Route: 048

REACTIONS (2)
  - LYMPHOMA [None]
  - PNEUMONIA [None]
